FAERS Safety Report 12624796 (Version 2)
Quarter: 2017Q1

REPORT INFORMATION
  Report Type: Report from Study
  Country: CN (occurrence: CN)
  Receive Date: 20160805
  Receipt Date: 20170120
  Transmission Date: 20170428
  Serious: Yes (Other)
  Sender: FDA-Public Use
  Company Number: PHHY2016CN104488

PATIENT
  Age: 44 Year
  Sex: Male

DRUGS (164)
  1. MYFORTIC [Suspect]
     Active Substance: MYCOPHENOLATE SODIUM
     Dosage: 900 MG, QD
     Route: 048
     Dates: start: 20160530, end: 20160601
  2. BASILIXIMAB [Suspect]
     Active Substance: BASILIXIMAB
     Indication: RENAL TRANSPLANT
     Dosage: 20 MG, QD
     Route: 065
     Dates: start: 20160510, end: 20160510
  3. SODIUM CHLORIDE. [Concomitant]
     Active Substance: SODIUM CHLORIDE
     Dosage: 200 ML, PRN
     Route: 042
     Dates: start: 20160511, end: 20160511
  4. ALPROSTADIL. [Concomitant]
     Active Substance: ALPROSTADIL
     Dosage: 10 UG, PRN
     Route: 042
     Dates: start: 20160525, end: 20160525
  5. AROTINOLOL HYDROCHLORIDE [Concomitant]
     Active Substance: AROTINOLOL HYDROCHLORIDE
     Indication: HYPOTENSION
     Dosage: 10 MG, BID
     Route: 048
     Dates: start: 20160516, end: 20160601
  6. BETALOC [Concomitant]
     Active Substance: METOPROLOL TARTRATE
     Dosage: 25 MG, PRN
     Route: 048
     Dates: start: 20160518, end: 20160518
  7. CEFOTIAM HYDROCHLORIDE [Concomitant]
     Active Substance: CEFOTIAM HYDROCHLORIDE
     Indication: INFLAMMATION
     Dosage: 2000 MG, PRN
     Route: 042
     Dates: start: 20160510, end: 20160510
  8. CEPHAZOLINE SODIUM [Concomitant]
     Active Substance: CEFAZOLIN SODIUM
     Indication: PRODUCT USED FOR UNKNOWN INDICATION
     Dosage: 500 MG, PRN
     Route: 042
     Dates: start: 20160510, end: 20160510
  9. DIISOPROPYLAMINE DICHLOROACETATE [Concomitant]
     Indication: PROPHYLAXIS
     Dosage: 80 MG, PRN
     Route: 048
     Dates: start: 20160510, end: 20160510
  10. DIISOPROPYLAMINE DICHLOROACETATE [Concomitant]
     Dosage: 80 MG, QD
     Route: 042
     Dates: start: 20160511, end: 20160525
  11. DILTIAZEM HYDROCHLORIDE. [Concomitant]
     Active Substance: DILTIAZEM HYDROCHLORIDE
     Indication: DRUG LEVEL DECREASED
     Dosage: 30 MG, BID
     Route: 048
     Dates: start: 20160510, end: 20160525
  12. DOPAMINE HYDROCHLORIDE. [Concomitant]
     Active Substance: DOPAMINE HYDROCHLORIDE
     Indication: CARDIOVASCULAR INSUFFICIENCY
     Dosage: 10 MG, PRN
     Route: 042
     Dates: start: 20160511, end: 20160511
  13. DOXAZOSIN MESYLATE. [Concomitant]
     Active Substance: DOXAZOSIN MESYLATE
     Dosage: 4 MG, BID
     Route: 048
     Dates: start: 20160514, end: 20160517
  14. FUROSEMIDE. [Concomitant]
     Active Substance: FUROSEMIDE
     Dosage: 120 MG, PRN
     Route: 042
     Dates: start: 20160524, end: 20160524
  15. LEVOCARNITINE. [Concomitant]
     Active Substance: LEVOCARNITINE
     Indication: CARDIOVASCULAR EVENT PROPHYLAXIS
     Dosage: 1 DF, PRN
     Route: 042
     Dates: start: 20160510, end: 20160510
  16. NITRENDIPINE [Concomitant]
     Active Substance: NITRENDIPINE
     Dosage: 10 MG, PRN
     Route: 048
     Dates: start: 20160511, end: 20160511
  17. PALONOSETRON HYDROCHLORIDE. [Concomitant]
     Active Substance: PALONOSETRON HYDROCHLORIDE
     Indication: VOMITING
     Dosage: 0.25 MG, PRN
     Route: 042
     Dates: start: 20160510, end: 20160510
  18. PALONOSETRON HYDROCHLORIDE. [Concomitant]
     Active Substance: PALONOSETRON HYDROCHLORIDE
     Dosage: 0.25 MG, PRN
     Route: 048
     Dates: start: 20160511, end: 20160511
  19. POTASSIUM CHLORIDE. [Concomitant]
     Active Substance: POTASSIUM CHLORIDE
     Indication: PRODUCT USED FOR UNKNOWN INDICATION
     Dosage: 1000 MG, TID
     Route: 048
     Dates: start: 20160512, end: 20160517
  20. TALCID [Concomitant]
     Active Substance: HYDROTALCITE
     Dosage: 1000 MG, PRN
     Route: 048
     Dates: start: 20160511, end: 20160517
  21. BASILIXIMAB [Suspect]
     Active Substance: BASILIXIMAB
     Indication: IMMUNOSUPPRESSANT DRUG THERAPY
     Dosage: 20 MG, QD
     Route: 065
     Dates: start: 20160513, end: 20160513
  22. TACROLIMUS. [Suspect]
     Active Substance: TACROLIMUS
     Dosage: 3.5 MG, QD
     Route: 065
     Dates: start: 20160603
  23. MYCOPHENOLATE MOFETIL. [Suspect]
     Active Substance: MYCOPHENOLATE MOFETIL
     Indication: IMMUNOSUPPRESSANT DRUG THERAPY
  24. METHYLPREDNISOLONE. [Suspect]
     Active Substance: METHYLPREDNISOLONE
     Dosage: 400 MG, QD
     Route: 065
     Dates: start: 20160519, end: 20160519
  25. SODIUM CHLORIDE. [Concomitant]
     Active Substance: SODIUM CHLORIDE
     Dosage: 100 ML, PRN
     Route: 042
     Dates: start: 20160517, end: 20160517
  26. AMINO ACID [Concomitant]
     Active Substance: AMINO ACIDS
     Dosage: 500 ML, QD
     Route: 042
     Dates: start: 20160510, end: 20160511
  27. DILTIAZEM HYDROCHLORIDE. [Concomitant]
     Active Substance: DILTIAZEM HYDROCHLORIDE
     Indication: HYPOTENSION
     Dosage: 200 MG, PRN
     Route: 042
     Dates: start: 20160510, end: 20160510
  28. DOXAZOSIN MESYLATE. [Concomitant]
     Active Substance: DOXAZOSIN MESYLATE
     Indication: HYPOTENSION
     Dosage: 4 MG, PRN
     Route: 048
     Dates: start: 20160511, end: 20160511
  29. DOXAZOSIN MESYLATE. [Concomitant]
     Active Substance: DOXAZOSIN MESYLATE
     Dosage: 4 MG, PRN
     Route: 048
     Dates: start: 20160514, end: 20160514
  30. FELODIPINE. [Concomitant]
     Active Substance: FELODIPINE
     Dosage: 5 MG, BID
     Route: 048
     Dates: start: 20160511, end: 20160517
  31. FUROSEMIDE. [Concomitant]
     Active Substance: FUROSEMIDE
     Dosage: 120 MG, PRN
     Route: 042
     Dates: start: 20160511, end: 20160511
  32. MAGNESIUM ISOGLYCYRRHIZINATE [Concomitant]
     Active Substance: MAGNESIUM ISOGLYCYRRHIZINATE
     Indication: PROPHYLAXIS
     Dosage: 40 ML, QD
     Route: 042
     Dates: start: 20160525, end: 20160525
  33. NITRENDIPINE [Concomitant]
     Active Substance: NITRENDIPINE
     Dosage: 10 MG, PRN
     Route: 042
     Dates: start: 20160512, end: 20160512
  34. NITRENDIPINE [Concomitant]
     Active Substance: NITRENDIPINE
     Dosage: 10 MG, TID
     Route: 042
     Dates: start: 20160518, end: 20160518
  35. OMEPRAZOLE SODIUM [Concomitant]
     Active Substance: OMEPRAZOLE SODIUM
     Dosage: 40 MG, BID
     Route: 042
     Dates: start: 20160510, end: 20160511
  36. PANTOPRAZOLE [Concomitant]
     Active Substance: PANTOPRAZOLE SODIUM
     Dosage: 40 MG, QD
     Route: 048
     Dates: start: 20160608
  37. PHOSPHOCREATINE SODIUM [Concomitant]
     Indication: CARDIOVASCULAR EVENT PROPHYLAXIS
     Dosage: 1 G, PRN
     Route: 042
     Dates: start: 20160510, end: 20160510
  38. PHOSPHOCREATINE SODIUM [Concomitant]
     Dosage: 1 G, QD
     Route: 042
     Dates: start: 20160511, end: 20160512
  39. GLUTATHIONE [Concomitant]
     Active Substance: GLUTATHIONE
     Dosage: 1200 MG, QD
     Route: 042
     Dates: start: 20160511, end: 20160525
  40. MYCOPHENOLATE MOFETIL. [Suspect]
     Active Substance: MYCOPHENOLATE MOFETIL
     Indication: RENAL TRANSPLANT
     Dosage: 1000 MG, QD
     Route: 065
     Dates: start: 20160509, end: 20160509
  41. METHYLPREDNISOLONE. [Suspect]
     Active Substance: METHYLPREDNISOLONE
     Indication: KIDNEY TRANSPLANT REJECTION
     Dosage: 500 MG, QD
     Route: 065
     Dates: start: 20160509, end: 20160512
  42. METHYLPREDNISOLONE. [Suspect]
     Active Substance: METHYLPREDNISOLONE
     Dosage: 16 MG, QD
     Route: 065
     Dates: start: 20160526
  43. SODIUM CHLORIDE. [Concomitant]
     Active Substance: SODIUM CHLORIDE
     Indication: DEVICE ISSUE
     Dosage: 100 ML, PRN
     Route: 042
     Dates: start: 20160509, end: 20160509
  44. SODIUM CHLORIDE. [Concomitant]
     Active Substance: SODIUM CHLORIDE
     Dosage: 50 ML, PRN
     Route: 042
     Dates: start: 20160522, end: 20160522
  45. ALBUMIN [Concomitant]
     Active Substance: ALBUMIN HUMAN
     Dosage: 10 G, PRN
     Route: 042
     Dates: start: 20160516, end: 20160516
  46. ALBUMIN [Concomitant]
     Active Substance: ALBUMIN HUMAN
     Dosage: 10 G, PRN
     Route: 042
     Dates: start: 20160517, end: 20160517
  47. BETALOC [Concomitant]
     Active Substance: METOPROLOL TARTRATE
     Dosage: 25 MG, PRN
     Route: 048
     Dates: start: 20160513, end: 20160608
  48. BICYCLOL [Concomitant]
     Active Substance: BICYCLOL
     Indication: TRANSAMINASES DECREASED
     Dosage: 50 MG, TID
     Route: 048
     Dates: start: 20160525, end: 20160608
  49. COENZYME [Concomitant]
     Active Substance: UBIDECARENONE
     Indication: PRODUCT USED FOR UNKNOWN INDICATION
     Dosage: 2 DF, PRN
     Route: 042
     Dates: start: 20160510, end: 20160510
  50. DOXOFYLLINE [Concomitant]
     Active Substance: DOXOFYLLINE
     Indication: COUGH
     Dosage: 200 MG, PRN
     Route: 042
     Dates: start: 20160510, end: 20160510
  51. FUROSEMIDE. [Concomitant]
     Active Substance: FUROSEMIDE
     Dosage: 80 MG, QD
     Route: 042
     Dates: start: 20160512, end: 20160512
  52. FUROSEMIDE. [Concomitant]
     Active Substance: FUROSEMIDE
     Dosage: 160 MG, PRN
     Route: 042
     Dates: start: 20160514, end: 20160514
  53. FUROSEMIDE. [Concomitant]
     Active Substance: FUROSEMIDE
     Dosage: 80 MG, PRN
     Route: 042
     Dates: start: 20160522, end: 20160522
  54. FUROSEMIDE. [Concomitant]
     Active Substance: FUROSEMIDE
     Dosage: 40 MG, PRN
     Route: 042
     Dates: start: 20160529, end: 20160529
  55. MAGNESIUM ISOGLYCYRRHIZINATE [Concomitant]
     Active Substance: MAGNESIUM ISOGLYCYRRHIZINATE
     Dosage: 40 ML, PRN
     Route: 042
     Dates: start: 20160525, end: 20160525
  56. MARZULENE-S [Concomitant]
     Active Substance: SODIUM GUALENATE
     Indication: GASTRITIS PROPHYLAXIS
     Dosage: 670 MG, PRN
     Route: 042
     Dates: start: 20160510, end: 20160510
  57. MUCOSOLVAN [Concomitant]
     Active Substance: AMBROXOL HYDROCHLORIDE
     Dosage: 30 MG, TID
     Route: 042
     Dates: start: 20160510, end: 20160523
  58. NITRENDIPINE [Concomitant]
     Active Substance: NITRENDIPINE
     Dosage: 10 MG, PRN
     Route: 048
     Dates: start: 20160514, end: 20160514
  59. NITROGLYCERIN. [Concomitant]
     Active Substance: NITROGLYCERIN
     Dosage: 40 MG, PRN
     Route: 042
     Dates: start: 20160517, end: 20160517
  60. PALONOSETRON HYDROCHLORIDE. [Concomitant]
     Active Substance: PALONOSETRON HYDROCHLORIDE
     Dosage: 25 UG, PRN
     Route: 042
     Dates: start: 20160512, end: 20160512
  61. PHENOBARBITAL SODIUM. [Concomitant]
     Active Substance: PHENOBARBITAL SODIUM
     Indication: SEDATION
     Dosage: 100 MG, PRN
     Route: 030
     Dates: start: 20160509, end: 20160509
  62. PROMETHAZINE HYDROCHLORIDE. [Concomitant]
     Active Substance: PROMETHAZINE HYDROCHLORIDE
     Indication: ALLERGY PROPHYLAXIS
     Dosage: 25 MG, PRN
     Route: 030
     Dates: start: 20160517, end: 20160517
  63. SCOPOLAMINE HYDROBROMIDE. [Concomitant]
     Active Substance: SCOPOLAMINE HYDROBROMIDE
     Indication: GASTROINTESTINAL DISORDER
     Dosage: 300 UG, PRN
     Route: 030
     Dates: start: 20160509, end: 20160509
  64. SODIUM NITROPRUSSIDE [Concomitant]
     Active Substance: SODIUM NITROPRUSSIDE
     Dosage: 50 MG, PRN
     Route: 042
     Dates: start: 20160517, end: 20160517
  65. TALCID [Concomitant]
     Active Substance: HYDROTALCITE
     Indication: GASTRITIS PROPHYLAXIS
     Dosage: 1000 MG, PRN
     Route: 048
     Dates: start: 20160511, end: 20160511
  66. SODIUM CHLORIDE. [Concomitant]
     Active Substance: SODIUM CHLORIDE
     Dosage: 100 ML, PRN
     Route: 042
     Dates: start: 20160524, end: 20160524
  67. ALBUMIN [Concomitant]
     Active Substance: ALBUMIN HUMAN
     Dosage: 20 G, PRN
     Route: 042
     Dates: start: 20160511, end: 20160511
  68. ALBUMIN [Concomitant]
     Active Substance: ALBUMIN HUMAN
     Dosage: 10 G, PRN
     Route: 042
     Dates: start: 20160522, end: 20160522
  69. BUDESONIDE. [Concomitant]
     Active Substance: BUDESONIDE
     Indication: PRODUCTIVE COUGH
     Dosage: 1 DF, TID
     Route: 055
     Dates: start: 20160510, end: 20160523
  70. CETIRIZINE HYDROCHLORIDE. [Concomitant]
     Active Substance: CETIRIZINE HYDROCHLORIDE
     Dosage: 10 MG, PRN
     Route: 048
     Dates: start: 20160524, end: 20160524
  71. DILTIAZEM HYDROCHLORIDE. [Concomitant]
     Active Substance: DILTIAZEM HYDROCHLORIDE
     Dosage: 50 MG, PRN
     Route: 042
     Dates: start: 20160510, end: 20160510
  72. DOPAMINE HYDROCHLORIDE. [Concomitant]
     Active Substance: DOPAMINE HYDROCHLORIDE
     Dosage: 10 MG, QD
     Route: 042
     Dates: start: 20160511, end: 20160528
  73. DOXAZOSIN MESYLATE. [Concomitant]
     Active Substance: DOXAZOSIN MESYLATE
     Dosage: 4 MG, PRN
     Route: 048
     Dates: start: 20160513, end: 20160513
  74. DOXOFYLLINE [Concomitant]
     Active Substance: DOXOFYLLINE
     Indication: WHEEZING
     Dosage: 200 MG, QD
     Route: 042
     Dates: start: 20160510, end: 20160511
  75. FUROSEMIDE. [Concomitant]
     Active Substance: FUROSEMIDE
     Indication: POLYURIA
     Dosage: 80 MG, PRN
     Route: 042
     Dates: start: 20160510, end: 20160510
  76. FUROSEMIDE. [Concomitant]
     Active Substance: FUROSEMIDE
     Dosage: 320 MG, QD
     Route: 042
     Dates: start: 20160513, end: 20160513
  77. FUROSEMIDE. [Concomitant]
     Active Substance: FUROSEMIDE
     Dosage: 240 MG, PRN
     Route: 042
     Dates: start: 20160517, end: 20160517
  78. FUROSEMIDE. [Concomitant]
     Active Substance: FUROSEMIDE
     Dosage: 240 MG, PRN
     Route: 042
     Dates: start: 20160519, end: 20160519
  79. LEVOCARNITINE. [Concomitant]
     Active Substance: LEVOCARNITINE
     Dosage: 1 DF, QD
     Route: 042
     Dates: start: 20160512, end: 20160525
  80. METHYLPREDNISOLONE. [Concomitant]
     Active Substance: METHYLPREDNISOLONE
     Indication: ALLERGY PROPHYLAXIS
     Dosage: 40 MG, PRN
     Route: 042
     Dates: start: 20160517, end: 20160517
  81. MUCOSOLVAN [Concomitant]
     Active Substance: AMBROXOL HYDROCHLORIDE
     Dosage: 30 MG, TID
     Route: 055
     Dates: start: 20160510, end: 20160523
  82. OMEPRAZOLE SODIUM [Concomitant]
     Active Substance: OMEPRAZOLE SODIUM
     Indication: GASTRITIS PROPHYLAXIS
     Dosage: 40 MG, PRN
     Route: 042
     Dates: start: 20160510, end: 20160510
  83. OMEPRAZOLE SODIUM [Concomitant]
     Active Substance: OMEPRAZOLE SODIUM
     Dosage: 40 MG, QD
     Route: 042
     Dates: start: 20160516, end: 20160524
  84. OMEPRAZOLE SODIUM [Concomitant]
     Active Substance: OMEPRAZOLE SODIUM
     Dosage: 40 MG, PRN
     Route: 042
     Dates: start: 20160518, end: 20160518
  85. PANTOPRAZOLE [Concomitant]
     Active Substance: PANTOPRAZOLE SODIUM
     Indication: GASTRITIS PROPHYLAXIS
     Dosage: 40 MG, QD
     Route: 048
     Dates: start: 20160524, end: 20160608
  86. MYFORTIC [Suspect]
     Active Substance: MYCOPHENOLATE SODIUM
     Dosage: 720 MG, QD
     Route: 048
     Dates: start: 20160602
  87. TACROLIMUS. [Suspect]
     Active Substance: TACROLIMUS
     Indication: IMMUNOSUPPRESSANT DRUG THERAPY
     Dosage: 6 MG, QD
     Route: 065
     Dates: start: 20160525, end: 20160526
  88. SODIUM CHLORIDE. [Concomitant]
     Active Substance: SODIUM CHLORIDE
     Dosage: 2000 ML, PRN
     Route: 042
     Dates: start: 20160510, end: 20160510
  89. SODIUM CHLORIDE. [Concomitant]
     Active Substance: SODIUM CHLORIDE
     Dosage: 100 ML, QD
     Route: 042
     Dates: start: 20160531, end: 20160531
  90. ADALAT [Concomitant]
     Active Substance: NIFEDIPINE
     Indication: HYPOTENSION
     Dosage: 30 MG, PRN
     Route: 048
     Dates: start: 20160511, end: 20160511
  91. ADALAT [Concomitant]
     Active Substance: NIFEDIPINE
     Dosage: 30 MG, BID
     Route: 048
     Dates: start: 20160517, end: 20160525
  92. CEFOTIAM HYDROCHLORIDE [Concomitant]
     Active Substance: CEFOTIAM HYDROCHLORIDE
     Indication: INFECTION PROPHYLAXIS
     Dosage: 2000 MG, BID
     Route: 042
     Dates: start: 20160510, end: 20160511
  93. CLOPIDOGREL HYDROGEN SULFATE [Concomitant]
     Active Substance: CLOPIDOGREL BISULFATE
     Dosage: 10 MG, QD
     Route: 048
     Dates: start: 20160608
  94. CRAVIT [Concomitant]
     Active Substance: LEVOFLOXACIN
     Indication: INFLAMMATION
     Dosage: 100 ML, PRN
     Route: 042
     Dates: start: 20160509, end: 20160509
  95. DILTIAZEM HYDROCHLORIDE. [Concomitant]
     Active Substance: DILTIAZEM HYDROCHLORIDE
     Dosage: 50 MG, PRN
     Route: 042
     Dates: start: 20160511, end: 20160511
  96. FELODIPINE. [Concomitant]
     Active Substance: FELODIPINE
     Dosage: 5 MG, PRN
     Route: 042
     Dates: start: 20160511, end: 20160511
  97. FUROSEMIDE. [Concomitant]
     Active Substance: FUROSEMIDE
     Dosage: 120 MG, PRN
     Route: 042
     Dates: start: 20160525, end: 20160525
  98. FUROSEMIDE. [Concomitant]
     Active Substance: FUROSEMIDE
     Dosage: 40 MG, PRN
     Route: 042
     Dates: start: 20160528, end: 20160528
  99. HEPARIN CALCIUM [Concomitant]
     Active Substance: HEPARIN CALCIUM
     Indication: COAGULOPATHY
     Dosage: 2500 IU, QD
     Route: 042
     Dates: start: 20160511, end: 20160511
  100. METHYLPREDNISOLONE. [Concomitant]
     Active Substance: METHYLPREDNISOLONE
     Dosage: 40 MG, PRN
     Route: 042
     Dates: start: 20160524, end: 20160524
  101. NIFEDIPINE. [Concomitant]
     Active Substance: NIFEDIPINE
     Indication: HYPOTENSION
     Dosage: 10 MG, PRN
     Route: 048
     Dates: start: 20160512, end: 20160512
  102. PRAZOSIN HYDROCHLORIDE. [Concomitant]
     Active Substance: PRAZOSIN HYDROCHLORIDE
     Dosage: 4 MG, TID
     Route: 048
     Dates: start: 20160517, end: 20160521
  103. PROMETHAZINE HYDROCHLORIDE. [Concomitant]
     Active Substance: PROMETHAZINE HYDROCHLORIDE
     Dosage: 25 MG, PRN
     Route: 042
     Dates: start: 20160524, end: 20160524
  104. TELMISARTAN. [Concomitant]
     Active Substance: TELMISARTAN
     Indication: HYPOTENSION
     Dosage: 160 MG, PRN
     Route: 048
     Dates: start: 20160511, end: 20160511
  105. MYFORTIC [Suspect]
     Active Substance: MYCOPHENOLATE SODIUM
     Indication: RENAL TRANSPLANT
     Dosage: 1440 MG, QD
     Route: 048
     Dates: start: 20160510, end: 20160510
  106. MYFORTIC [Suspect]
     Active Substance: MYCOPHENOLATE SODIUM
     Dosage: 1260 MG, QD
     Route: 048
     Dates: start: 20160511, end: 20160529
  107. TACROLIMUS. [Suspect]
     Active Substance: TACROLIMUS
     Indication: RENAL TRANSPLANT
     Dosage: 5.5 MG, QD
     Route: 065
     Dates: start: 20160510, end: 20160524
  108. TACROLIMUS. [Suspect]
     Active Substance: TACROLIMUS
     Dosage: 4.5 MG, QD
     Route: 065
     Dates: start: 20160527, end: 20160531
  109. SODIUM CHLORIDE. [Concomitant]
     Active Substance: SODIUM CHLORIDE
     Dosage: 200 ML, PRN
     Route: 042
     Dates: start: 20160510, end: 20160510
  110. ALBUMIN [Concomitant]
     Active Substance: ALBUMIN HUMAN
     Indication: PRODUCT USED FOR UNKNOWN INDICATION
     Dosage: 20 G, PRN
     Route: 042
     Dates: start: 20160510, end: 20160510
  111. BICYCLOL [Concomitant]
     Active Substance: BICYCLOL
     Dosage: 10 MG, TID
     Route: 048
     Dates: start: 20160608
  112. CETIRIZINE HYDROCHLORIDE. [Concomitant]
     Active Substance: CETIRIZINE HYDROCHLORIDE
     Dosage: 10 MG, PRN
     Route: 048
     Dates: start: 20160531, end: 20160531
  113. CLOPIDOGREL HYDROGEN SULFATE [Concomitant]
     Active Substance: CLOPIDOGREL BISULFATE
     Indication: THROMBOSIS PROPHYLAXIS
     Dosage: 10 MG, QD
     Route: 048
     Dates: start: 20160522, end: 20160608
  114. AMINO ACID [Concomitant]
     Active Substance: AMINO ACIDS
     Indication: PRODUCT USED FOR UNKNOWN INDICATION
     Dosage: 67 G, PRN
     Route: 042
     Dates: start: 20160510, end: 20160510
  115. COENZYME [Concomitant]
     Active Substance: UBIDECARENONE
     Dosage: 2 DF, QD
     Route: 042
     Dates: start: 20160510, end: 20160511
  116. CRAVIT [Concomitant]
     Active Substance: LEVOFLOXACIN
     Indication: INFECTION PROPHYLAXIS
  117. ESOMEPRAZOLE MAGNESIUM. [Concomitant]
     Active Substance: ESOMEPRAZOLE MAGNESIUM
     Indication: GASTRITIS PROPHYLAXIS
     Dosage: 20 MG, PRN
     Route: 048
     Dates: start: 20160512, end: 20160512
  118. FELODIPINE. [Concomitant]
     Active Substance: FELODIPINE
     Indication: HYPOTENSION
     Dosage: 5 MG, PRN
     Route: 048
     Dates: start: 20160511, end: 20160511
  119. FUROSEMIDE. [Concomitant]
     Active Substance: FUROSEMIDE
     Dosage: 40 MG, QD
     Route: 042
     Dates: start: 20160511, end: 20160528
  120. FUROSEMIDE. [Concomitant]
     Active Substance: FUROSEMIDE
     Dosage: 120 MG, PRN
     Route: 042
     Dates: start: 20160516, end: 20160516
  121. NITRENDIPINE [Concomitant]
     Active Substance: NITRENDIPINE
     Indication: HYPOTENSION
     Dosage: 10 MG, PRN
     Route: 042
     Dates: start: 20160511, end: 20160511
  122. NITRENDIPINE [Concomitant]
     Active Substance: NITRENDIPINE
     Dosage: 10 MG, TID
     Route: 042
     Dates: start: 20160516, end: 20160516
  123. NITROGLYCERIN. [Concomitant]
     Active Substance: NITROGLYCERIN
     Indication: HYPOTENSION
     Dosage: 20 MG, PRN
     Route: 042
     Dates: start: 20160516, end: 20160516
  124. PHOSPHOCREATINE SODIUM [Concomitant]
     Dosage: 1 G, QD
     Route: 042
     Dates: start: 20160510, end: 20160511
  125. POLYENE PHOSPHATIDYLCHOLINE [Concomitant]
     Active Substance: PHOSPHOLIPID
     Indication: PROPHYLAXIS
     Dosage: 456 MG, TID
     Route: 042
     Dates: start: 20160525, end: 20160608
  126. PRAZOSIN HYDROCHLORIDE. [Concomitant]
     Active Substance: PRAZOSIN HYDROCHLORIDE
     Indication: HYPOTENSION
     Dosage: 2 MG, TID
     Route: 048
     Dates: start: 20160517, end: 20160517
  127. SODIUM NITROPRUSSIDE [Concomitant]
     Active Substance: SODIUM NITROPRUSSIDE
     Indication: HYPOTENSION
     Dosage: 50 MG, PRN
     Route: 042
     Dates: start: 20160516, end: 20160516
  128. TELMISARTAN. [Concomitant]
     Active Substance: TELMISARTAN
     Dosage: 80 MG, BID
     Route: 048
     Dates: start: 20160511, end: 20160524
  129. METHYLPREDNISOLONE. [Suspect]
     Active Substance: METHYLPREDNISOLONE
     Dosage: 500 MG, QD
     Route: 065
     Dates: start: 20160518, end: 20160518
  130. PREDNISONE. [Suspect]
     Active Substance: PREDNISONE
     Indication: PRODUCT USED FOR UNKNOWN INDICATION
     Dosage: 20 MG, QD
     Route: 065
     Dates: start: 20160512, end: 20160525
  131. SODIUM CHLORIDE. [Concomitant]
     Active Substance: SODIUM CHLORIDE
     Dosage: 100 ML, QD
     Route: 042
     Dates: start: 20160511, end: 20160517
  132. SODIUM CHLORIDE. [Concomitant]
     Active Substance: SODIUM CHLORIDE
     Dosage: 100 ML, PRN
     Route: 042
     Dates: start: 20160513, end: 20160513
  133. SODIUM CHLORIDE. [Concomitant]
     Active Substance: SODIUM CHLORIDE
     Dosage: 100 ML, PRN
     Route: 042
     Dates: start: 20160516, end: 20160516
  134. ALPROSTADIL. [Concomitant]
     Active Substance: ALPROSTADIL
     Indication: CARDIOVASCULAR INSUFFICIENCY
     Dosage: 10 UG, PRN
     Route: 042
     Dates: start: 20160510, end: 20160510
  135. BETALOC [Concomitant]
     Active Substance: METOPROLOL TARTRATE
     Indication: HYPOTENSION
     Dosage: 25 MG, PRN
     Route: 048
     Dates: start: 20160513, end: 20160513
  136. CEFOTIAM HYDROCHLORIDE [Concomitant]
     Active Substance: CEFOTIAM HYDROCHLORIDE
     Dosage: 2000 MG, BID
     Route: 042
     Dates: start: 20160511, end: 20160516
  137. CETIRIZINE HYDROCHLORIDE. [Concomitant]
     Active Substance: CETIRIZINE HYDROCHLORIDE
     Indication: HYPERSENSITIVITY
     Dosage: 10 MG, PRN
     Route: 048
     Dates: start: 20160517, end: 20160517
  138. COENZYME [Concomitant]
     Active Substance: UBIDECARENONE
     Dosage: 2 DF, PRN
     Route: 042
     Dates: start: 20160514, end: 20160514
  139. COENZYME [Concomitant]
     Active Substance: UBIDECARENONE
     Dosage: 2 DF, QD
     Route: 042
     Dates: start: 20160514, end: 20160516
  140. FUROSEMIDE. [Concomitant]
     Active Substance: FUROSEMIDE
     Dosage: 120 MG, PRN
     Route: 042
     Dates: start: 20160521, end: 20160521
  141. ALBUMIN HUMAN [Concomitant]
     Active Substance: ALBUMIN HUMAN
     Indication: PRODUCT USED FOR UNKNOWN INDICATION
     Dosage: 10 G, PRN
     Route: 042
     Dates: start: 20160509, end: 20160509
  142. LEVOCARNITINE. [Concomitant]
     Active Substance: LEVOCARNITINE
     Dosage: 1 DF, QD
     Route: 042
     Dates: start: 20160510, end: 20160511
  143. HEPARIN CALCIUM [Concomitant]
     Active Substance: HEPARIN CALCIUM
     Dosage: 2500 IU, QD
     Route: 042
     Dates: start: 20160511, end: 20160528
  144. HEPARIN CALCIUM [Concomitant]
     Active Substance: HEPARIN CALCIUM
     Dosage: 2500 IU, PRN
     Route: 042
     Dates: start: 20160517, end: 20160517
  145. HEPARIN CALCIUM [Concomitant]
     Active Substance: HEPARIN CALCIUM
     Dosage: 2500 IU, PRN
     Route: 042
     Dates: start: 20160524, end: 20160524
  146. MUCOSOLVAN [Concomitant]
     Active Substance: AMBROXOL HYDROCHLORIDE
     Indication: PRODUCTIVE COUGH
     Dosage: 30 MG, PRN
     Route: 042
     Dates: start: 20160510, end: 20160510
  147. PROMETHAZINE HYDROCHLORIDE. [Concomitant]
     Active Substance: PROMETHAZINE HYDROCHLORIDE
     Dosage: 25 MG, PRN
     Route: 030
     Dates: start: 20160531, end: 20160531
  148. REBAMIPIDE [Concomitant]
     Active Substance: REBAMIPIDE
     Indication: GASTRITIS PROPHYLAXIS
     Dosage: 100 MG, TID
     Route: 048
     Dates: start: 20160512, end: 20160517
  149. GLUTATHIONE [Concomitant]
     Active Substance: GLUTATHIONE
     Dosage: 1200 MG, QD
     Route: 042
     Dates: start: 20160510, end: 20160511
  150. ADALAT [Concomitant]
     Active Substance: NIFEDIPINE
     Dosage: 30 MG, PRN
     Route: 048
     Dates: start: 20160514, end: 20160514
  151. BETALOC [Concomitant]
     Active Substance: METOPROLOL TARTRATE
     Dosage: 25 MG, QD
     Route: 048
     Dates: start: 20160608
  152. DIISOPROPYLAMINE DICHLOROACETATE [Concomitant]
     Dosage: 80 MG, QD
     Route: 042
     Dates: start: 20160510, end: 20160511
  153. IPRATROPIUM BROMIDE. [Concomitant]
     Active Substance: IPRATROPIUM BROMIDE
     Indication: PRODUCTIVE COUGH
     Dosage: 1 DF, TID
     Route: 055
     Dates: start: 20160510, end: 20160523
  154. DOXOFYLLINE [Concomitant]
     Active Substance: DOXOFYLLINE
     Dosage: 200 MG, QD
     Route: 042
     Dates: start: 20160511, end: 20160525
  155. FUROSEMIDE. [Concomitant]
     Active Substance: FUROSEMIDE
     Dosage: 80 MG, PRN
     Route: 042
     Dates: start: 20160519, end: 20160519
  156. FUROSEMIDE. [Concomitant]
     Active Substance: FUROSEMIDE
     Dosage: 120 MG, PRN
     Route: 042
     Dates: start: 20160521, end: 20160521
  157. HEPARIN SODIUM. [Concomitant]
     Active Substance: HEPARIN SODIUM
     Indication: DEVICE ISSUE
     Dosage: 6250 IU, QD
     Route: 042
     Dates: start: 20160510, end: 20160524
  158. LEVOCARNITINE. [Concomitant]
     Active Substance: LEVOCARNITINE
     Dosage: 1 DF, QD
     Route: 042
     Dates: start: 20160511, end: 20160512
  159. METHYLPREDNISOLONE. [Concomitant]
     Active Substance: METHYLPREDNISOLONE
     Dosage: 40 MG, PRN
     Route: 042
     Dates: start: 20160531, end: 20160531
  160. OMEPRAZOLE SODIUM [Concomitant]
     Active Substance: OMEPRAZOLE SODIUM
     Dosage: 40 MG, BID
     Route: 042
     Dates: start: 20160511, end: 20160516
  161. OMEPRAZOLE SODIUM [Concomitant]
     Active Substance: OMEPRAZOLE SODIUM
     Dosage: 40 MG, PRN
     Route: 042
     Dates: start: 20160519, end: 20160519
  162. GLUTATHIONE [Concomitant]
     Active Substance: GLUTATHIONE
     Indication: PROPHYLAXIS
     Dosage: 1200 MG, PRN
     Route: 042
     Dates: start: 20160510, end: 20160510
  163. SODIUM LACTATE. [Concomitant]
     Active Substance: SODIUM LACTATE
     Indication: PRODUCT USED FOR UNKNOWN INDICATION
     Dosage: 2000 ML, PRN
     Route: 042
     Dates: start: 20160510, end: 20160510
  164. TRIMETAZIDINE [Concomitant]
     Active Substance: TRIMETAZIDINE
     Indication: CARDIOVASCULAR EVENT PROPHYLAXIS
     Dosage: 20 MG, TID
     Route: 048
     Dates: start: 20160514, end: 20160608

REACTIONS (14)
  - Lymphocyte count decreased [Unknown]
  - Urine analysis abnormal [Unknown]
  - Neutrophil count increased [Unknown]
  - Abdominal pain upper [Recovered/Resolved]
  - Kidney transplant rejection [Recovering/Resolving]
  - White blood cell count decreased [Unknown]
  - Blood urea increased [Unknown]
  - Haemoglobin decreased [Unknown]
  - Alanine aminotransferase increased [Unknown]
  - Blood glucose increased [Unknown]
  - Aspartate aminotransferase increased [Unknown]
  - Platelet count decreased [Unknown]
  - Blood triglycerides increased [Unknown]
  - High density lipoprotein decreased [Unknown]

NARRATIVE: CASE EVENT DATE: 20160511
